FAERS Safety Report 12529479 (Version 1)
Quarter: 2016Q3

REPORT INFORMATION
  Report Type: Spontaneous
  Country: US (occurrence: US)
  Receive Date: 20160706
  Receipt Date: 20160706
  Transmission Date: 20161109
  Serious: No
  Sender: FDA-Public Use
  Company Number: US-ASTRAZENECA-2016SE56216

PATIENT
  Age: 652 Month
  Sex: Female

DRUGS (1)
  1. METOPROLOL SUCCINATE. [Suspect]
     Active Substance: METOPROLOL SUCCINATE
     Indication: ARRHYTHMIA SUPRAVENTRICULAR
     Route: 048

REACTIONS (4)
  - Hypersensitivity [Recovering/Resolving]
  - Asthma [Recovering/Resolving]
  - Swelling [Recovering/Resolving]
  - Upper-airway cough syndrome [Recovering/Resolving]

NARRATIVE: CASE EVENT DATE: 201604
